FAERS Safety Report 4493115-3 (Version None)
Quarter: 2004Q4

REPORT INFORMATION
  Report Type: 
  Country: None (occurrence: None)
  Receive Date: 20041029
  Receipt Date: 20041018
  Transmission Date: 20050328
  Serious: Yes (Hospitalization)
  Sender: FDA-Public Use
  Company Number: HQWYE896019OCT04

PATIENT
  Age: 45 Year
  Sex: Female

DRUGS (3)
  1. EFFEXOR [Suspect]
     Indication: PREMENSTRUAL SYNDROME
     Dosage: VARIED DOSE ORAL
     Route: 048
     Dates: start: 20020101
  2. EFFEXOR XR [Suspect]
     Dosage: (VARIOUS DOSES), ORAL
     Route: 048
     Dates: start: 20040101
  3. ETHANOL (ETHANOL) [Suspect]
     Dosage: SMALL AMOUNT, ORAL
     Route: 048

REACTIONS (6)
  - AGITATION [None]
  - AMNESIA [None]
  - ANGER [None]
  - BELLIGERENCE [None]
  - DRUG INTERACTION [None]
  - SEROTONIN SYNDROME [None]
